FAERS Safety Report 21453830 (Version 2)
Quarter: 2022Q4

REPORT INFORMATION
  Report Type: Spontaneous
  Country: US (occurrence: US)
  Receive Date: 20221013
  Receipt Date: 20221104
  Transmission Date: 20230112
  Serious: No
  Sender: FDA-Public Use
  Company Number: US-BRISTOL-MYERS SQUIBB COMPANY-2022-119706

PATIENT
  Age: 29 Year
  Sex: Male

DRUGS (2)
  1. ORENCIA [Suspect]
     Active Substance: ABATACEPT
     Indication: Sjogren^s syndrome
     Dosage: LOT EXPIRATION DATE:03/31/2024
     Route: 058
     Dates: start: 202109
  2. ORENCIA [Suspect]
     Active Substance: ABATACEPT
     Indication: Hyperhidrosis

REACTIONS (7)
  - Bursitis [Unknown]
  - Swelling [Unknown]
  - Condition aggravated [Unknown]
  - Infection [Unknown]
  - Intentional product use issue [Unknown]
  - Depression [Unknown]
  - Prostatitis [Unknown]
